FAERS Safety Report 18848993 (Version 2)
Quarter: 2021Q1

REPORT INFORMATION
  Report Type: Spontaneous
  Country: US (occurrence: US)
  Receive Date: 20210204
  Receipt Date: 20210311
  Transmission Date: 20210419
  Serious: No
  Sender: FDA-Public Use
  Company Number: US-MYLANLABS-2021M1005193

PATIENT
  Sex: Female
  Weight: 82 kg

DRUGS (3)
  1. ESTRADIOL TRANSDERMAL SYSTEM [Suspect]
     Active Substance: ESTRADIOL
     Indication: HORMONE REPLACEMENT THERAPY
     Dosage: 0.037 MILLIGRAM, BIWEEKLY
     Route: 062
  2. PROGESTERONE. [Concomitant]
     Active Substance: PROGESTERONE
     Dosage: UNK
  3. ESTRADIOL TRANSDERMAL SYSTEM [Suspect]
     Active Substance: ESTRADIOL
     Dosage: UNK
     Route: 062
     Dates: start: 20201227, end: 20210115

REACTIONS (4)
  - Abnormal dreams [Recovering/Resolving]
  - Insomnia [Recovering/Resolving]
  - Nightmare [Recovering/Resolving]
  - Sleep disorder [Recovering/Resolving]
